FAERS Safety Report 12808132 (Version 8)
Quarter: 2018Q4

REPORT INFORMATION
  Report Type: Spontaneous
  Country: US (occurrence: US)
  Receive Date: 20161004
  Receipt Date: 20181122
  Transmission Date: 20190204
  Serious: Yes (Hospitalization, Other)
  Sender: FDA-Public Use
  Company Number: US-PFIZER INC-2016460329

PATIENT
  Age: 78 Year
  Sex: Female
  Weight: 93.44 kg

DRUGS (13)
  1. LYRICA [Suspect]
     Active Substance: PREGABALIN
     Indication: NEURALGIA
  2. LORAZEPAM. [Concomitant]
     Active Substance: LORAZEPAM
     Indication: SLEEP DISORDER
     Dosage: 1.5 MG, 1X/DAY [EVERY NIGHT]
  3. ADVAIR HFA [Concomitant]
     Active Substance: FLUTICASONE PROPIONATE\SALMETEROL XINAFOATE
     Dosage: UNK
  4. DOXEPIN [Concomitant]
     Active Substance: DOXEPIN
     Indication: SLEEP DISORDER
     Dosage: 25 MG, 1X/DAY [ONE EVERY NIGHT]
  5. LYRICA [Suspect]
     Active Substance: PREGABALIN
     Indication: PAIN
     Dosage: UNK UNK, 4X/DAY
     Route: 048
     Dates: start: 2013
  6. LYRICA [Suspect]
     Active Substance: PREGABALIN
     Indication: FIBROMYALGIA
  7. DOXEPIN [Concomitant]
     Active Substance: DOXEPIN
     Indication: BRADYPHRENIA
  8. PANTOPRAZOLE [Concomitant]
     Active Substance: PANTOPRAZOLE
     Indication: FLATULENCE
     Dosage: 40 MG, 2X/DAY
     Route: 048
     Dates: start: 2016
  9. PANTOPRAZOLE [Concomitant]
     Active Substance: PANTOPRAZOLE
     Indication: HIATUS HERNIA
  10. LYRICA [Suspect]
     Active Substance: PREGABALIN
     Indication: LUMBAR SPINAL STENOSIS
     Dosage: 75 MG, 3X/DAY
     Route: 048
  11. LYRICA [Suspect]
     Active Substance: PREGABALIN
     Indication: PAIN IN EXTREMITY
     Dosage: 50 MG, 3X/DAY
     Route: 048
  12. LYRICA [Suspect]
     Active Substance: PREGABALIN
     Indication: ARTHRITIS
     Dosage: 50 MG, 3X/DAY
     Route: 048
     Dates: start: 20130304
  13. DILTIZEM [Concomitant]
     Indication: BLOOD PRESSURE ABNORMAL
     Dosage: 120 MG, DAILY [EVERY DAY]

REACTIONS (14)
  - Product dispensing error [Unknown]
  - Pain [Unknown]
  - Pneumonia bacterial [Recovered/Resolved]
  - Off label use [Unknown]
  - Intentional product use issue [Unknown]
  - Fluid retention [Recovering/Resolving]
  - Pain in extremity [Recovering/Resolving]
  - Stress [Unknown]
  - Hypoaesthesia [Unknown]
  - Product dose omission [Unknown]
  - Hallucination [Unknown]
  - Fall [Unknown]
  - Anger [Recovering/Resolving]
  - Musculoskeletal stiffness [Recovering/Resolving]

NARRATIVE: CASE EVENT DATE: 2013
